FAERS Safety Report 8607377 (Version 5)
Quarter: 2012Q4

REPORT INFORMATION
  Report Type: Report from Study
  Country: JP (occurrence: JP)
  Receive Date: 20120611
  Receipt Date: 20121220
  Transmission Date: 20130627
  Serious: Yes (Hospitalization, Other)
  Sender: FDA-Public Use
  Company Number: JP-VERTEX PHARMACEUTICALS INC.-AE-2012-006307

PATIENT
  Age: 50 Year
  Sex: Male

DRUGS (22)
  1. VX-950 (TELAPREVIR) [Suspect]
     Indication: CHRONIC HEPATITIS C
     Dosage: 2250 mg, qd
     Route: 048
     Dates: start: 20120126, end: 20120205
  2. VX-950 (TELAPREVIR) [Suspect]
     Dosage: 1500 mg, qd
     Route: 048
     Dates: start: 20120206, end: 20120222
  3. VX-950 (TELAPREVIR) [Suspect]
     Dosage: 2000 mg, qd
     Route: 048
     Dates: start: 20120223
  4. VX-950 (TELAPREVIR) [Suspect]
     Dosage: 1500 mg, qd
     Route: 048
     Dates: end: 20120404
  5. VX-950 (TELAPREVIR) [Suspect]
     Dosage: 1000 mg, qd
     Route: 048
     Dates: start: 20120405, end: 20120407
  6. VX-950 (TELAPREVIR) [Suspect]
     Dosage: 1000 mg, qd
     Route: 048
     Dates: start: 20120410, end: 20120412
  7. VX-950 (TELAPREVIR) [Suspect]
     Dosage: 1500 mg, qd
     Route: 048
     Dates: start: 20120414, end: 20120418
  8. REBETOL [Suspect]
     Indication: CHRONIC HEPATITIS C
     Dosage: 1000 mg, qd
     Route: 048
     Dates: start: 20120126, end: 20120222
  9. REBETOL [Suspect]
     Dosage: 600 mg, qd
     Route: 048
     Dates: start: 20120223, end: 20120328
  10. REBETOL [Suspect]
     Dosage: 200 mg, qd
     Route: 048
     Dates: start: 20120329, end: 20120407
  11. REBETOL [Suspect]
     Dosage: 400 mg, qd
     Route: 048
     Dates: start: 20120410, end: 20120415
  12. REBETOL [Suspect]
     Dosage: 600 mg, qd
     Route: 048
     Dates: start: 20120416, end: 20120509
  13. REBETOL [Suspect]
     Dosage: 800 mg, qd
     Route: 048
     Dates: start: 20120510, end: 20120712
  14. PEGINTRON                          /01543001/ [Suspect]
     Indication: CHRONIC HEPATITIS C
     Dosage: 1.5 ?g/kg, qw
     Route: 058
     Dates: start: 20120126, end: 20120712
  15. GASMOTIN [Concomitant]
     Dosage: 15 mg, qd
     Route: 048
     Dates: start: 20120127
  16. OLMETEC [Concomitant]
     Dosage: 20 mg, qd
     Route: 048
  17. CONIEL [Concomitant]
     Dosage: 4 mg, qd
     Route: 048
  18. CONIEL [Concomitant]
     Dosage: 4 mg, qd
     Route: 048
     Dates: start: 20120418
  19. LOXONIN [Concomitant]
     Dosage: 60 mg, prn
     Route: 048
     Dates: start: 20120315
  20. PREDONINE                          /00016201/ [Concomitant]
     Dosage: 20 mg, qd
     Route: 048
     Dates: end: 20120430
  21. PREDONINE                          /00016201/ [Concomitant]
     Dosage: 10 mg, qd
     Route: 048
     Dates: start: 20120501, end: 20120507
  22. PREDONINE                          /00016201/ [Concomitant]
     Dosage: 5 mg, qd
     Route: 048
     Dates: start: 20120508, end: 20120510

REACTIONS (2)
  - Renal impairment [Recovered/Resolved]
  - Haemoglobin decreased [Recovered/Resolved]
